FAERS Safety Report 12620433 (Version 18)
Quarter: 2018Q1

REPORT INFORMATION
  Report Type: Report from Study
  Country: JP (occurrence: JP)
  Receive Date: 20160803
  Receipt Date: 20180209
  Transmission Date: 20180508
  Serious: Yes (Other)
  Sender: FDA-Public Use
  Company Number: JP-BRISTOL-MYERS SQUIBB COMPANY-BMS-2016-034551

PATIENT
  Age: 29 Year
  Sex: Female
  Weight: 50 kg

DRUGS (15)
  1. OPDIVO [Suspect]
     Active Substance: NIVOLUMAB
     Indication: MALIGNANT MELANOMA
     Dosage: 3 MG/KG, UNK
     Route: 041
     Dates: start: 20160525, end: 20170119
  2. CEFDITOREN PIVOXIL. [Concomitant]
     Active Substance: CEFDITOREN PIVOXIL
     Indication: CANCER SURGERY
     Dosage: UNK
     Route: 065
     Dates: start: 20160229, end: 20160302
  3. METHYCOBAL [Concomitant]
     Active Substance: METHYLCOBALAMIN
     Indication: PRODUCT USED FOR UNKNOWN INDICATION
     Route: 065
  4. ADETPHOS [Concomitant]
     Active Substance: ADENOSINE TRIPHOSPHATE
     Indication: PRODUCT USED FOR UNKNOWN INDICATION
     Route: 065
  5. TALION                             /01587402/ [Concomitant]
     Active Substance: BEPOTASTINE
     Indication: SEASONAL ALLERGY
     Dosage: UNK
     Route: 065
     Dates: start: 20160309
  6. PATANOL [Concomitant]
     Active Substance: OLOPATADINE HYDROCHLORIDE
     Indication: SEASONAL ALLERGY
     Dosage: UNK
     Route: 047
     Dates: start: 20160309, end: 20160315
  7. IPILIMUMAB [Suspect]
     Active Substance: IPILIMUMAB
     Indication: MALIGNANT MELANOMA
     Dosage: 3 MG/KG, UNK
     Route: 041
     Dates: start: 20160217, end: 20160901
  8. IRON [Concomitant]
     Active Substance: IRON
     Indication: PRODUCT USED FOR UNKNOWN INDICATION
     Dosage: UNK
     Route: 065
  9. TRANSAMIN [Concomitant]
     Active Substance: TRANEXAMIC ACID
     Indication: CANCER SURGERY
     Dosage: UNK
     Route: 065
     Dates: start: 20160229, end: 20160302
  10. ECABET SODIUM [Concomitant]
     Active Substance: ECABET SODIUM
     Indication: CANCER SURGERY
     Dosage: UNK
     Route: 065
     Dates: start: 20160229, end: 20160302
  11. FAMOTIDINE. [Concomitant]
     Active Substance: FAMOTIDINE
     Indication: GASTRITIS PROPHYLAXIS
     Dosage: UNK
     Route: 065
     Dates: start: 20160414
  12. LOXOPROFEN [Concomitant]
     Active Substance: LOXOPROFEN
     Indication: CANCER SURGERY
     Dosage: UNK
     Route: 065
     Dates: start: 20160223, end: 20160302
  13. CORTRIL [Concomitant]
     Active Substance: HYDROCORTISONE
     Indication: HYPOPITUITARISM
     Dosage: 15 MG, UNK
     Route: 048
     Dates: start: 20160414
  14. MIYA-BM [Concomitant]
     Active Substance: CLOSTRIDIUM BUTYRICUM SPORES STRAIN M-55
     Indication: CONSTIPATION
     Dosage: UNK
     Route: 065
     Dates: start: 20160218
  15. FERROUS SULFATE. [Concomitant]
     Active Substance: FERROUS SULFATE
     Indication: ANAEMIA
     Dosage: UNK
     Route: 065
     Dates: start: 20160602

REACTIONS (7)
  - Cortisol decreased [Recovering/Resolving]
  - Lymphocyte count increased [Recovered/Resolved]
  - Diarrhoea [Recovered/Resolved]
  - Blood corticotrophin decreased [Recovering/Resolving]
  - Sudden hearing loss [Recovered/Resolved]
  - Surfactant protein increased [Not Recovered/Not Resolved]
  - Hypopituitarism [Not Recovered/Not Resolved]

NARRATIVE: CASE EVENT DATE: 20160414
